FAERS Safety Report 10483649 (Version 2)
Quarter: 2014Q4

REPORT INFORMATION
  Report Type: Report from Study
  Country: US (occurrence: US)
  Receive Date: 20140930
  Receipt Date: 20141015
  Transmission Date: 20150528
  Serious: Yes (Death, Life-Threatening, Hospitalization)
  Sender: FDA-Public Use
  Company Number: US-JNJFOC-20140923927

PATIENT
  Age: 48 Year
  Sex: Female
  Weight: 71 kg

DRUGS (9)
  1. APAP [Suspect]
     Active Substance: ACETAMINOPHEN
     Indication: MALAISE
     Route: 048
  2. APAP [Suspect]
     Active Substance: ACETAMINOPHEN
     Indication: VOMITING
     Route: 048
  3. METHOTREXATE [Suspect]
     Active Substance: METHOTREXATE
     Indication: PRODUCT USED FOR UNKNOWN INDICATION
     Dosage: WEEKLY LOW-DOSE
     Route: 065
  4. APAP [Suspect]
     Active Substance: ACETAMINOPHEN
     Indication: ABDOMINAL PAIN
     Route: 048
  5. METOPROLOL [Concomitant]
     Active Substance: METOPROLOL
     Route: 065
  6. APAP [Suspect]
     Active Substance: ACETAMINOPHEN
     Indication: ABDOMINAL PAIN
     Route: 048
  7. APAP [Suspect]
     Active Substance: ACETAMINOPHEN
     Indication: VOMITING
     Route: 048
  8. APAP [Suspect]
     Active Substance: ACETAMINOPHEN
     Indication: MALAISE
     Route: 048
  9. LISINOPRIL. [Concomitant]
     Active Substance: LISINOPRIL
     Route: 065

REACTIONS (20)
  - Septic shock [Fatal]
  - Alcoholic pancreatitis [Fatal]
  - Pneumonia fungal [Fatal]
  - Prothrombin level increased [Unknown]
  - Overdose [Unknown]
  - Renal failure [Fatal]
  - Alcoholic liver disease [Unknown]
  - Shock [Unknown]
  - Transaminases increased [Unknown]
  - Product use issue [Unknown]
  - Respiratory failure [Fatal]
  - Candida sepsis [Fatal]
  - Drug-induced liver injury [Unknown]
  - Hypotension [Unknown]
  - Abdominal pain [Unknown]
  - Vomiting [Unknown]
  - Alcoholism [Fatal]
  - Cholestasis [Fatal]
  - Blood bilirubin increased [Unknown]
  - Blood creatinine increased [Unknown]

NARRATIVE: CASE EVENT DATE: 20140919
